FAERS Safety Report 21656247 (Version 1)
Quarter: 2022Q4

REPORT INFORMATION
  Report Type: Spontaneous
  Country: US (occurrence: US)
  Receive Date: 20221129
  Receipt Date: 20221129
  Transmission Date: 20230112
  Serious: No
  Sender: FDA-Public Use
  Company Number: US-TEVA-2022-US-2824195

PATIENT
  Age: 55 Year
  Sex: Female

DRUGS (1)
  1. METHYLPHENIDATE HYDROCHLORIDE [Suspect]
     Active Substance: METHYLPHENIDATE HYDROCHLORIDE
     Indication: Product used for unknown indication
     Dosage: FORM STRENGTH: 36 MG
     Route: 065

REACTIONS (9)
  - Confusional state [Unknown]
  - Heart rate increased [Unknown]
  - Disturbance in attention [Unknown]
  - Panic disorder [Unknown]
  - Nervousness [Unknown]
  - Insomnia [Unknown]
  - Hyperhidrosis [Unknown]
  - Memory impairment [Unknown]
  - Anxiety [Unknown]
